FAERS Safety Report 5319240-2 (Version None)
Quarter: 2007Q1

REPORT INFORMATION
  Report Type: 
  Country: None (occurrence: None)
  Receive Date: 20070202
  Receipt Date: 20060818
  Transmission Date: 20070707
  Serious: Yes (Hospitalization)
  Sender: FDA-Public Use
  Company Number: 256239

PATIENT
  Age: 75 Year
  Sex: Male
  Weight: 79.4 kg

DRUGS (6)
  1. NOVOLOG [Suspect]
     Indication: DIABETES MELLITUS INSULIN-DEPENDENT
     Dosage: 24 IU + SLIDING SCALE, SUBCUTAN.-PUMP
     Route: 058
     Dates: start: 20020101
  2. ZANTAC [Concomitant]
  3. ALLEGRA /01314201/ (FEXOFENADINE) [Concomitant]
  4. SINGULAIR /01362601/ (MONTELUKAST) [Concomitant]
  5. ASPIRIN [Concomitant]
  6. PREDNISONE TAB [Concomitant]

REACTIONS (2)
  - ACCIDENTAL OVERDOSE [None]
  - BLOOD GLUCOSE DECREASED [None]
